FAERS Safety Report 11224197 (Version 1)
Quarter: 2015Q2

REPORT INFORMATION
  Report Type: Spontaneous
  Country: AU (occurrence: AU)
  Receive Date: 20150629
  Receipt Date: 20150629
  Transmission Date: 20150821
  Serious: Yes (Other)
  Sender: FDA-Public Use
  Company Number: AU-ROCHE-1597885

PATIENT
  Age: 53 Year
  Sex: Female

DRUGS (8)
  1. OXALIPLATIN. [Suspect]
     Active Substance: OXALIPLATIN
     Indication: NEOPLASM MALIGNANT
     Route: 065
     Dates: start: 20150129
  2. ASPIRIN. [Concomitant]
     Active Substance: ASPIRIN
  3. AVAPRO HCT [Concomitant]
     Active Substance: HYDROCHLOROTHIAZIDE\IRBESARTAN
  4. PLAVIX [Concomitant]
     Active Substance: CLOPIDOGREL BISULFATE
  5. FRUSEMIDE [Concomitant]
     Active Substance: FUROSEMIDE
  6. NORVASC [Concomitant]
     Active Substance: AMLODIPINE BESYLATE
  7. XELODA [Suspect]
     Active Substance: CAPECITABINE
     Indication: NEOPLASM MALIGNANT
     Route: 065
  8. LIPITOR [Concomitant]
     Active Substance: ATORVASTATIN CALCIUM

REACTIONS (11)
  - Blood pressure increased [Recovering/Resolving]
  - Cold sweat [Unknown]
  - Tachycardia [Unknown]
  - Vasodilatation [Unknown]
  - Tachypnoea [Recovering/Resolving]
  - Pain in extremity [Recovering/Resolving]
  - Fatigue [Recovering/Resolving]
  - Temperature intolerance [Unknown]
  - Dyspnoea [Recovering/Resolving]
  - Vision blurred [Recovering/Resolving]
  - Pallor [Unknown]
